FAERS Safety Report 6986857-9 (Version None)
Quarter: 2010Q3

REPORT INFORMATION
  Report Type: 
  Country: None (occurrence: None)
  Receive Date: 20100915
  Receipt Date: 20090817
  Transmission Date: 20110219
  Serious: No
  Sender: FDA-Public Use
  Company Number: US-WYE-H10628309

PATIENT
  Sex: Female
  Weight: 54.48 kg

DRUGS (4)
  1. PRISTIQ [Suspect]
     Indication: DEPRESSION
     Route: 048
     Dates: start: 20090417
  2. TORADOL [Concomitant]
  3. CLONAZEPAM [Concomitant]
  4. DARVOCET-N 100 [Concomitant]

REACTIONS (1)
  - DRUG EFFECT DECREASED [None]
